FAERS Safety Report 14863765 (Version 1)
Quarter: 2018Q2

REPORT INFORMATION
  Report Type: Report from Study
  Country: US (occurrence: US)
  Receive Date: 20180508
  Receipt Date: 20180508
  Transmission Date: 20180711
  Serious: Yes (Death, Other)
  Sender: FDA-Public Use
  Company Number: US-GILEAD-2018-0336655

PATIENT

DRUGS (2)
  1. ATAZANAVIR SULFATE W/RITONAVIR [Concomitant]
     Active Substance: ATAZANAVIR SULFATE\RITONAVIR
     Indication: HIV INFECTION
  2. EMTRICITABINE/TENOFOVIR DISOPROXIL FUMARATE [Suspect]
     Active Substance: EMTRICITABINE\TENOFOVIR DISOPROXIL FUMARATE
     Indication: HIV INFECTION
     Dosage: UNK
     Route: 064

REACTIONS (2)
  - Premature baby death [Fatal]
  - Foetal exposure during pregnancy [Recovered/Resolved]
